FAERS Safety Report 9134638 (Version 1)
Quarter: 2013Q1

REPORT INFORMATION
  Report Type: Spontaneous
  Country: NL (occurrence: NL)
  Receive Date: 20130304
  Receipt Date: 20130304
  Transmission Date: 20140127
  Serious: Yes (Life-Threatening, Other)
  Sender: FDA-Public Use
  Company Number: PHHY2012NL073313

PATIENT
  Age: 84 Year
  Sex: Male

DRUGS (12)
  1. ZOMETA [Suspect]
     Indication: PROSTATE CANCER METASTATIC
     Dosage: 4MG/100ML,  ONCE PER 28 DAYS
  2. ZOMETA [Suspect]
     Dosage: 4MG/100ML,  ONCE PER 28 DAYS
     Dates: start: 20120210
  3. ZOMETA [Suspect]
     Dosage: 4MG/100ML,  ONCE PER 28 DAYS
     Dates: start: 20120724
  4. ZOMETA [Suspect]
     Dosage: 4MG/100ML,  ONCE PER 28 DAYS
     Dates: start: 20120824
  5. ZOMETA [Suspect]
     Dosage: 4MG/100ML,  ONCE PER 28 DAYS
     Dates: start: 20130111, end: 20130208
  6. LANOXIN [Concomitant]
     Dosage: 250 UG, DAILY
  7. RASILEZ [Concomitant]
     Dosage: 150 UG, DAILY
  8. METOPROLOL SUCCINATE [Concomitant]
     Dosage: 100 MG, DAILY
  9. HYDROCHLOROTHIAZIDE [Concomitant]
     Dosage: 20/125MG ONCE DAILY
  10. LERDIP [Concomitant]
     Dosage: UNK UKN, UNK
  11. ACENOCOUMAROL [Concomitant]
     Dosage: UNK UKN, UNK
  12. FIRMAGON [Concomitant]
     Dosage: UNK UKN, UNK

REACTIONS (3)
  - Terminal state [Unknown]
  - Metastases to bone [Not Recovered/Not Resolved]
  - Prostatic specific antigen increased [Not Recovered/Not Resolved]
